FAERS Safety Report 4551189-5 (Version None)
Quarter: 2005Q1

REPORT INFORMATION
  Report Type: 
  Country: None (occurrence: None)
  Receive Date: 20050106
  Receipt Date: 20041223
  Transmission Date: 20050727
  Serious: Yes (Other)
  Sender: FDA-Public Use
  Company Number: 2004-UK-01411UK

PATIENT
  Age: 65 Year
  Sex: Female

DRUGS (6)
  1. CLONIDINE (00015/ 5014R) (CLONIDINE HYDROCHLORIDE) (NR) [Suspect]
     Indication: FLUSHING
     Dosage: 300MG, 3 TIMES DAILY (, 3 TIMES DAILY) PO
     Route: 048
  2. CYCLIZINE (CYCLIZINE) (NR) [Concomitant]
  3. MST CONTINUS (NR) [Concomitant]
  4. FRUSEMIDE (FUROSEMIDE) (NR) [Concomitant]
  5. OMEPRAZOLE [Concomitant]
  6. CITALOPRAM (CITALOPRAM HYDROBROMIDE) (NR) [Concomitant]

REACTIONS (2)
  - FALL [None]
  - ORTHOSTATIC HYPOTENSION [None]
